FAERS Safety Report 4722852-8 (Version None)
Quarter: 2005Q3

REPORT INFORMATION
  Report Type: 
  Country: None (occurrence: None)
  Receive Date: 20050722
  Receipt Date: 20050712
  Transmission Date: 20060218
  Serious: Yes (Hospitalization)
  Sender: FDA-Public Use
  Company Number: FR-GLAXOSMITHKLINE-B0387353A

PATIENT
  Age: 3 Day
  Sex: Male
  Weight: 3.2 kg

DRUGS (5)
  1. ZIDOVUDINE [Suspect]
     Indication: ANTIVIRAL PROPHYLAXIS
     Dosage: 2MGK FOUR TIMES PER DAY
     Route: 048
     Dates: start: 20030729
  2. COMBIVIR [Suspect]
     Indication: HIV INFECTION
  3. VIRAMUNE [Suspect]
     Indication: HIV INFECTION
  4. FOLDINE [Concomitant]
  5. FERROSTRANE [Concomitant]

REACTIONS (5)
  - BLOOD ANTIDIURETIC HORMONE INCREASED [None]
  - DRUG EXPOSURE DURING PREGNANCY [None]
  - HYPONATRAEMIA [None]
  - URINE SODIUM DECREASED [None]
  - WEIGHT INCREASED [None]
